FAERS Safety Report 6900913-2 (Version None)
Quarter: 2010Q3

REPORT INFORMATION
  Report Type: 
  Country: None (occurrence: None)
  Receive Date: 20100803
  Receipt Date: 20100727
  Transmission Date: 20110219
  Serious: Yes (Other)
  Sender: FDA-Public Use
  Company Number: A0873321A

PATIENT
  Age: 33 Year
  Sex: Female

DRUGS (24)
  1. COMBIVIR [Suspect]
     Indication: HIV INFECTION
     Route: 048
     Dates: start: 20031025
  2. NORVIR [Suspect]
     Indication: HIV INFECTION
     Route: 048
     Dates: start: 20031025
  3. FORTOVASE [Suspect]
     Indication: HIV INFECTION
     Route: 048
     Dates: start: 20031025
  4. PYRAZINAMIDE [Concomitant]
  5. PYRIDOXINE HYDROCHLORIDE [Concomitant]
  6. RANITIDINE HYDROCHLORIDE [Concomitant]
  7. RIFAMPICIN [Concomitant]
  8. ALBUTEROL [Concomitant]
  9. METRONIDAZOLE [Concomitant]
  10. AZITHROMYCIN [Concomitant]
  11. BACTRIM [Concomitant]
  12. BROMOPRIDE [Concomitant]
  13. CEPHALOTHIN SODIUM [Concomitant]
  14. CEFOTAXIME SODIUM [Concomitant]
  15. DEXAMETHASONE [Concomitant]
  16. DIMENHYDRINATE [Concomitant]
  17. FLUCONAZOLE [Concomitant]
  18. FOLINIC ACID [Concomitant]
  19. IRON PREPARATION [Concomitant]
  20. ISONIAZID [Concomitant]
  21. MICONAZOLE [Concomitant]
  22. MISOPROSTOL [Concomitant]
  23. NYSTATIN [Concomitant]
  24. OXYTOCIN [Concomitant]

REACTIONS (2)
  - DRUG EXPOSURE DURING PREGNANCY [None]
  - STILLBIRTH [None]
